FAERS Safety Report 10215972 (Version 2)
Quarter: 2014Q2

REPORT INFORMATION
  Report Type: Spontaneous
  Country: US (occurrence: US)
  Receive Date: 20140604
  Receipt Date: 20140630
  Transmission Date: 20141212
  Serious: Yes (Hospitalization, Other)
  Sender: FDA-Public Use
  Company Number: 2014SP002725

PATIENT
  Sex: Female
  Weight: 87.5 kg

DRUGS (18)
  1. OXALIPLATIN [Suspect]
     Indication: ADENOCARCINOMA OF COLON
     Route: 042
     Dates: start: 20131101
  2. OXALIPLATIN [Suspect]
     Indication: ADENOCARCINOMA OF COLON
     Route: 042
     Dates: start: 20140328, end: 20140415
  3. FOLINIC ACID [Suspect]
     Indication: ADENOCARCINOMA OF COLON
     Route: 042
     Dates: start: 20131101
  4. FLUOROURACIL [Suspect]
     Indication: ADENOCARCINOMA OF COLON
     Dates: start: 20131101
  5. FLUOROURACIL [Suspect]
     Indication: ADENOCARCINOMA OF COLON
     Route: 042
     Dates: start: 20131101
  6. CELECOXIB [Concomitant]
     Indication: PRODUCT USED FOR UNKNOWN INDICATION
  7. BENADRYL /01563701/ [Concomitant]
  8. CLONIDINE [Concomitant]
  9. DEXAMETHASONE [Concomitant]
  10. DILTIAZEM [Concomitant]
  11. FRAGMIN [Concomitant]
  12. FUROSEMIDE [Concomitant]
  13. LORAZEPAM [Concomitant]
  14. ONDANSETRON [Concomitant]
  15. OXEZE [Concomitant]
  16. PRAVASTATINE [Concomitant]
  17. REACTINE /00884302/ [Concomitant]
  18. ZANTAC [Concomitant]

REACTIONS (5)
  - Hypersensitivity [Recovered/Resolved with Sequelae]
  - Nausea [Recovered/Resolved with Sequelae]
  - Rash [Recovered/Resolved with Sequelae]
  - Eyelid oedema [Recovered/Resolved with Sequelae]
  - Oedema peripheral [Recovered/Resolved with Sequelae]
